FAERS Safety Report 20142512 (Version 1)
Quarter: 2021Q4

REPORT INFORMATION
  Report Type: Spontaneous
  Country: US (occurrence: None)
  Receive Date: 20211202
  Receipt Date: 20211202
  Transmission Date: 20220303
  Serious: No
  Sender: FDA-Public Use
  Company Number: US-ROCHE-2905957

PATIENT

DRUGS (2)
  1. EVRYSDI [Suspect]
     Active Substance: RISDIPLAM
     Indication: Product used for unknown indication
     Dosage: ONGOING: UNKNOWN
     Route: 065
  2. LEVOFLOXACIN [Suspect]
     Active Substance: LEVOFLOXACIN
     Indication: Product used for unknown indication
     Route: 065

REACTIONS (1)
  - Drug interaction [Unknown]
